FAERS Safety Report 21549766 (Version 1)
Quarter: 2022Q4

REPORT INFORMATION
  Report Type: Report from Study
  Country: US (occurrence: US)
  Receive Date: 20221103
  Receipt Date: 20221103
  Transmission Date: 20230113
  Serious: No
  Sender: FDA-Public Use
  Company Number: US-ABBVIE-4153217

PATIENT
  Sex: Female

DRUGS (1)
  1. HUMIRA [Suspect]
     Active Substance: ADALIMUMAB
     Indication: Crohn^s disease
     Dosage: CITRATE FREE
     Route: 058

REACTIONS (7)
  - Fatigue [Unknown]
  - Pruritus [Unknown]
  - Muscular weakness [Unknown]
  - Varicose vein [Unknown]
  - Injection site haemorrhage [Unknown]
  - Blood cholesterol abnormal [Unknown]
  - Gastrointestinal disorder [Unknown]
